FAERS Safety Report 8326204-3 (Version None)
Quarter: 2012Q2

REPORT INFORMATION
  Report Type: 
  Country: None (occurrence: None)
  Receive Date: 20120501
  Receipt Date: 20100622
  Transmission Date: 20120825
  Serious: No
  Sender: FDA-Public Use
  Company Number: US-TEVA-2010003380

PATIENT
  Sex: Male
  Weight: 102.15 kg

DRUGS (23)
  1. NUVIGIL [Suspect]
     Dosage: 250 MILLIGRAM;
     Route: 048
     Dates: start: 20100610
  2. ASPIRIN [Concomitant]
     Dosage: 325 MILLIGRAM;
     Route: 048
  3. CLONAZEPAM [Concomitant]
     Dosage: .5 MILLIGRAM;
     Dates: start: 20100618
  4. AVODART [Concomitant]
     Indication: BENIGN PROSTATIC HYPERPLASIA
     Dates: start: 20080101
  5. HYZAAR [Concomitant]
     Indication: HYPERTENSION
     Dosage: 50/12.5MG
     Route: 048
     Dates: start: 20050101
  6. OXYCODONE HCL [Concomitant]
     Indication: PAIN
     Dosage: 40 MILLIGRAM;
     Route: 048
     Dates: start: 20020101
  7. ALPRAZOLAM [Concomitant]
     Indication: SLEEP DISORDER THERAPY
     Dosage: 2 MILLIGRAM;
     Route: 048
     Dates: start: 20060101, end: 20100617
  8. ATENOLOL [Concomitant]
     Indication: HYPERTENSION
     Dosage: 50/25MG 1QAM AND 0.5 QHS
     Route: 048
     Dates: start: 20050101
  9. METHADONE HCL [Concomitant]
     Indication: PAIN
     Dosage: 20 MILLIGRAM; TID
     Route: 048
     Dates: start: 20020101
  10. GENOTROPIUM [Concomitant]
     Dosage: 1.2 MILLIGRAM; 6 DAYS PER WEEK
     Route: 058
     Dates: start: 20000101, end: 20100101
  11. WELLBUTRIN XL [Concomitant]
     Indication: DEPRESSION
     Dosage: 150 MILLIGRAM;
     Route: 048
     Dates: start: 20070601
  12. ANDROGEL [Concomitant]
     Dosage: 10 GRAM;
     Route: 061
     Dates: start: 20010101, end: 20100401
  13. NEXIUM [Concomitant]
     Indication: GASTROINTESTINAL HAEMORRHAGE
     Dosage: 80 MILLIGRAM;
     Route: 048
     Dates: start: 20071201
  14. TESTIM [Concomitant]
     Dates: start: 20100401
  15. NUVIGIL [Suspect]
     Indication: SLEEP APNOEA SYNDROME
     Dosage: 150 MILLIGRAM;
     Route: 048
     Dates: start: 20100520, end: 20100610
  16. NUVIGIL [Suspect]
     Dosage: 125 MILLIGRAM;
     Route: 048
     Dates: start: 20100610
  17. ZOLPIDEM [Concomitant]
     Dates: start: 20090101, end: 20100517
  18. ETODOLAC [Concomitant]
     Indication: BONE PAIN
     Dosage: 1 GRAM;
     Route: 048
     Dates: start: 20050101
  19. KLOR-CON [Concomitant]
     Dates: start: 20050101
  20. FEXOFENADINE [Concomitant]
  21. ETODOLAC [Concomitant]
     Indication: INFLAMMATION
  22. SYNTHROID [Concomitant]
     Indication: THYROID DISORDER
     Dosage: 100 MICROGRAM;
     Route: 048
     Dates: start: 20050101
  23. LUNESTA [Concomitant]
     Dates: start: 20100518, end: 20100617

REACTIONS (2)
  - INTENTIONAL DRUG MISUSE [None]
  - DRUG INEFFECTIVE [None]
